FAERS Safety Report 15822589 (Version 2)
Quarter: 2019Q1

REPORT INFORMATION
  Report Type: Spontaneous
  Country: NL (occurrence: NL)
  Receive Date: 20190114
  Receipt Date: 20190211
  Transmission Date: 20190417
  Serious: Yes (Other)
  Sender: FDA-Public Use
  Company Number: BR-SA-2019SA006287

PATIENT
  Age: 28 Year
  Sex: Female

DRUGS (2)
  1. CLOMIFENE CITRATE [Suspect]
     Active Substance: CLOMIPHENE
     Indication: POLYCYSTIC OVARIES
  2. PARLODEL [Concomitant]
     Active Substance: BROMOCRIPTINE MESYLATE
     Indication: BLOOD PROLACTIN INCREASED

REACTIONS (3)
  - Endometrial hyperplasia [Recovered/Resolved]
  - Drug ineffective [Unknown]
  - Endometrial adenocarcinoma [Recovered/Resolved]
